FAERS Safety Report 8019429-8 (Version None)
Quarter: 2012Q1

REPORT INFORMATION
  Report Type: 
  Country: None (occurrence: None)
  Receive Date: 20120103
  Receipt Date: 20111227
  Transmission Date: 20120608
  Serious: Yes (Other)
  Sender: FDA-Public Use
  Company Number: PHHY2011US05427

PATIENT
  Sex: Female

DRUGS (9)
  1. NAPROSYN [Concomitant]
     Dosage: 500 MG, BID
  2. GILENYA [Suspect]
     Indication: MULTIPLE SCLEROSIS
     Dosage: 0.5 MG, QD
     Route: 048
     Dates: start: 20110119
  3. PAXIL [Concomitant]
     Dosage: 20 MG, QD
  4. AMPYRA [Suspect]
     Indication: URINARY TRACT INFECTION
     Dosage: UNK UKN, UNK
  5. PROTONIX [Concomitant]
     Dosage: 40 MG, QD
  6. NAPRELAN [Concomitant]
     Dosage: UNK UKN, UNK
  7. TEGRETOL [Concomitant]
     Dosage: UNK UKN, UNK
  8. MACROBID [Concomitant]
     Dosage: 100 MG, QD
  9. TRAMADOL HCL [Concomitant]
     Indication: PAIN
     Dosage: UNK UKN, UNK

REACTIONS (3)
  - URINARY TRACT INFECTION [None]
  - TREMOR [None]
  - ABDOMINAL PAIN UPPER [None]
